FAERS Safety Report 4578258-8 (Version None)
Quarter: 2005Q1

REPORT INFORMATION
  Report Type: 
  Country: None (occurrence: None)
  Receive Date: 20050211
  Receipt Date: 20050201
  Transmission Date: 20050727
  Serious: Yes (Hospitalization)
  Sender: FDA-Public Use
  Company Number: US-JNJFOC-20040902698

PATIENT
  Sex: Male
  Weight: 76.2 kg

DRUGS (6)
  1. DURAGESIC [Suspect]
     Route: 062
     Dates: start: 20040804
  2. DURAGESIC [Suspect]
     Route: 062
     Dates: start: 20040804
  3. ASPIRIN [Concomitant]
     Indication: PAIN
     Route: 049
  4. PHENERGAN [Concomitant]
  5. LORTAB [Concomitant]
  6. LORTAB [Concomitant]

REACTIONS (5)
  - CHEST PAIN [None]
  - CONFUSIONAL STATE [None]
  - COSTOCHONDRITIS [None]
  - FIBROMYALGIA [None]
  - HYPERHIDROSIS [None]
